FAERS Safety Report 19715413 (Version 1)
Quarter: 2021Q3

REPORT INFORMATION
  Report Type: Spontaneous
  Country: GB (occurrence: GB)
  Receive Date: 20210818
  Receipt Date: 20210818
  Transmission Date: 20211014
  Serious: Yes (Other)
  Sender: FDA-Public Use
  Company Number: NVSC2021GB181155

PATIENT
  Age: 76 Year
  Sex: Female
  Weight: 80 kg

DRUGS (7)
  1. FOSTAIR [Concomitant]
     Active Substance: BECLOMETHASONE\FORMOTEROL
     Indication: PRODUCT USED FOR UNKNOWN INDICATION
     Dosage: 6 UG
     Route: 065
     Dates: start: 20210629, end: 20210803
  2. SPIRIVA [Concomitant]
     Active Substance: TIOTROPIUM BROMIDE MONOHYDRATE
     Indication: PRODUCT USED FOR UNKNOWN INDICATION
     Dosage: 1 UG
     Route: 065
  3. SALBUTAMOL [Concomitant]
     Active Substance: ALBUTEROL
     Indication: ASTHMA
     Dosage: 100 UG (AS NESESSARY)
     Route: 065
     Dates: start: 20210602
  4. FLUTICASONE. [Concomitant]
     Active Substance: FLUTICASONE
     Indication: PRODUCT USED FOR UNKNOWN INDICATION
     Dosage: 250 UG
     Route: 065
  5. SIMPLE LINCTUS [Concomitant]
     Active Substance: AMARANTH\CHLOROFORM\CITRIC ACID MONOHYDRATE\PIMPINELLA ANISUM WHOLE
     Indication: PRODUCT USED FOR UNKNOWN INDICATION
     Dosage: UNK
     Route: 065
  6. SEEBRI BREEZHALER [Suspect]
     Active Substance: GLYCOPYRROLATE
     Indication: PRODUCT USED FOR UNKNOWN INDICATION
     Dosage: 1 DF, QD (INHALE THE CONTENTS OF ONE CAPSULE ONCE DAILY, AT THE SAME TIME OF DAY)
     Route: 065
     Dates: start: 20210629, end: 20210630
  7. CITRIC ACID [Concomitant]
     Active Substance: CITRIC ACID MONOHYDRATE
     Indication: COUGH
     Dosage: 200 ML (ONE 5ML SPOONFUL TO BE TAKEN THREE TIMES A DAY)
     Route: 065
     Dates: start: 20210625, end: 20210724

REACTIONS (5)
  - Eye swelling [Recovering/Resolving]
  - Dry skin [Recovered/Resolved]
  - Hypersensitivity [Recovered/Resolved]
  - Dry throat [Recovered/Resolved]
  - Nasal abscess [Recovering/Resolving]

NARRATIVE: CASE EVENT DATE: 20210629
